FAERS Safety Report 5670195-0 (Version None)
Quarter: 2008Q1

REPORT INFORMATION
  Report Type: 
  Country: None (occurrence: None)
  Receive Date: 20080312
  Receipt Date: 20080229
  Transmission Date: 20080703
  Serious: Yes (Hospitalization)
  Sender: FDA-Public Use
  Company Number: 2008013537

PATIENT
  Age: 24 Year
  Sex: Female

DRUGS (3)
  1. DALTEPARIN SODIUM [Suspect]
     Indication: CEREBRAL VENOUS THROMBOSIS
     Dosage: INTRAVENOUS
     Route: 042
  2. PROGESTERONE [Concomitant]
  3. ANTIBIOTICS (ANTIBIOTICS) [Concomitant]

REACTIONS (6)
  - ALTERED STATE OF CONSCIOUSNESS [None]
  - CEREBRAL VENOUS THROMBOSIS [None]
  - CONDITION AGGRAVATED [None]
  - DRUG INEFFECTIVE [None]
  - INTRACRANIAL VENOUS SINUS THROMBOSIS [None]
  - TRANSVERSE SINUS THROMBOSIS [None]
